FAERS Safety Report 15732537 (Version 1)
Quarter: 2018Q4

REPORT INFORMATION
  Report Type: Spontaneous
  Country: US (occurrence: US)
  Receive Date: 20181217
  Receipt Date: 20181217
  Transmission Date: 20190205
  Serious: No
  Sender: FDA-Public Use
  Company Number: US-VIFOR (INTERNATIONAL) INC.-VIT-2018-08889

PATIENT
  Sex: Female

DRUGS (14)
  1. COZAAR [Concomitant]
     Active Substance: LOSARTAN POTASSIUM
  2. DEMADEX [Concomitant]
     Active Substance: TORSEMIDE
  3. CARDURA [Concomitant]
     Active Substance: DOXAZOSIN MESYLATE
  4. BUPROPION HCL [Concomitant]
     Active Substance: BUPROPION HYDROCHLORIDE
  5. ULORIC [Concomitant]
     Active Substance: FEBUXOSTAT
  6. TYLENOL EXTRA STRENGTH [Concomitant]
     Active Substance: ACETAMINOPHEN
  7. COLACE [Concomitant]
     Active Substance: DOCUSATE SODIUM
  8. VELTASSA [Suspect]
     Active Substance: PATIROMER
     Indication: CHRONIC KIDNEY DISEASE
     Route: 065
  9. ACYCLOVIR. [Concomitant]
     Active Substance: ACYCLOVIR
  10. PEPCID [Concomitant]
     Active Substance: FAMOTIDINE
  11. CORGARD [Concomitant]
     Active Substance: NADOLOL
  12. ZOCOR [Concomitant]
     Active Substance: SIMVASTATIN
  13. ALDACTONE [Concomitant]
     Active Substance: SPIRONOLACTONE
  14. PRESERVISION ARDS 2 [Concomitant]

REACTIONS (2)
  - Constipation [Unknown]
  - Product use in unapproved indication [Unknown]
